FAERS Safety Report 24150128 (Version 3)
Quarter: 2024Q3

REPORT INFORMATION
  Report Type: Report from Study
  Country: US (occurrence: US)
  Receive Date: 20240730
  Receipt Date: 20240916
  Transmission Date: 20241016
  Serious: Yes (Hospitalization)
  Sender: ABBVIE
  Company Number: US-ABBVIE-5856121

PATIENT
  Sex: Female

DRUGS (1)
  1. SKYRIZI [Suspect]
     Active Substance: RISANKIZUMAB-RZAA
     Indication: Crohn^s disease
     Route: 042
     Dates: start: 20240723

REACTIONS (3)
  - Intestinal obstruction [Not Recovered/Not Resolved]
  - Unevaluable event [Unknown]
  - Obstruction [Unknown]

NARRATIVE: CASE EVENT DATE: 20240101
